FAERS Safety Report 25945418 (Version 1)
Quarter: 2025Q4

REPORT INFORMATION
  Report Type: Spontaneous
  Country: US (occurrence: US)
  Receive Date: 20251021
  Receipt Date: 20251021
  Transmission Date: 20260118
  Serious: No
  Sender: ELI LILLY AND COMPANY
  Company Number: US-ELI_LILLY_AND_COMPANY-US202510012215

PATIENT
  Age: 71 Year
  Sex: Female

DRUGS (1)
  1. ZEPBOUND [Suspect]
     Active Substance: TIRZEPATIDE
     Indication: Weight control
     Dosage: 2.5 MG, UNKNOWN
     Route: 065
     Dates: start: 20250924

REACTIONS (9)
  - Headache [Recovered/Resolved]
  - Rhinorrhoea [Unknown]
  - Thirst [Unknown]
  - Postmenopausal haemorrhage [Unknown]
  - Vaginal discharge [Unknown]
  - Muscle strain [Unknown]
  - Dry mouth [Unknown]
  - Abdominal pain lower [Unknown]
  - Dizziness [Unknown]

NARRATIVE: CASE EVENT DATE: 20251005
